FAERS Safety Report 20218230 (Version 1)
Quarter: 2021Q4

REPORT INFORMATION
  Report Type: Spontaneous
  Country: BR (occurrence: BR)
  Receive Date: 20211222
  Receipt Date: 20211222
  Transmission Date: 20220303
  Serious: Yes (Hospitalization, Other)
  Sender: FDA-Public Use
  Company Number: BR-BAYER-2021A245701

PATIENT
  Age: 64 Year
  Sex: Male

DRUGS (5)
  1. STIVARGA [Suspect]
     Active Substance: REGORAFENIB
     Indication: Hepatic cancer
     Dosage: UNK
     Dates: start: 2020
  2. STIVARGA [Suspect]
     Active Substance: REGORAFENIB
     Indication: Hepatic cancer
     Dosage: 40 MG, QD
     Dates: start: 20211217
  3. EVEROLIMUS [Concomitant]
     Active Substance: EVEROLIMUS
     Indication: Transplant rejection
     Dosage: 2 DF, BID
     Dates: start: 201907
  4. EVEROLIMUS [Concomitant]
     Active Substance: EVEROLIMUS
     Indication: Transplant rejection
     Dosage: 1 DF, BID
     Dates: start: 202112
  5. PREDNISONE [Concomitant]
     Active Substance: PREDNISONE
     Dosage: UNK
     Dates: start: 201907

REACTIONS (3)
  - Hepatic cancer [None]
  - Dry skin [Not Recovered/Not Resolved]
  - Skin exfoliation [Not Recovered/Not Resolved]

NARRATIVE: CASE EVENT DATE: 20210101
